FAERS Safety Report 5823152-5 (Version None)
Quarter: 2008Q3

REPORT INFORMATION
  Report Type: 
  Country: None (occurrence: None)
  Receive Date: 20080725
  Receipt Date: 20080716
  Transmission Date: 20090109
  Serious: Yes (Other)
  Sender: FDA-Public Use
  Company Number: PHHY2008FR13202

PATIENT
  Sex: Female

DRUGS (3)
  1. ZOLEDRONIC ACID [Suspect]
     Indication: OSTEOPOROSIS
     Dosage: UNK
     Dates: start: 20080609
  2. CHONDROSULF [Concomitant]
     Indication: OSTEOARTHRITIS
     Dosage: UNK
     Dates: start: 20050101
  3. PROPOFAN [Concomitant]
     Dosage: UNK

REACTIONS (3)
  - LIMB INJURY [None]
  - PHLEBITIS [None]
  - PHLEBITIS DEEP [None]
